FAERS Safety Report 19183379 (Version 1)
Quarter: 2021Q2

REPORT INFORMATION
  Report Type: Spontaneous
  Country: US (occurrence: US)
  Receive Date: 20210427
  Receipt Date: 20210427
  Transmission Date: 20210717
  Serious: Yes (Hospitalization, Other)
  Sender: FDA-Public Use
  Company Number: US-ALKEM LABORATORIES LIMITED-US-ALKEM-2021-02196

PATIENT
  Age: 38 Year
  Sex: Male

DRUGS (4)
  1. PREDNISONE. [Concomitant]
     Active Substance: PREDNISONE
     Indication: IMMUNOSUPPRESSION
     Dosage: 7.5 MILLIGRAM, QD
     Route: 065
  2. TACROLIMUS. [Suspect]
     Active Substance: TACROLIMUS
     Indication: IMMUNOSUPPRESSION
     Dosage: 3 MILLIGRAM (EVERY 12 H)
     Route: 065
  3. MYCOPHENOLATE SODIUM [Concomitant]
     Active Substance: MYCOPHENOLATE SODIUM
     Indication: IMMUNOSUPPRESSION
     Dosage: 360 MILLIGRAM, BID
     Route: 065
  4. STRIBILD [Interacting]
     Active Substance: COBICISTAT\ELVITEGRAVIR\EMTRICITABINE\TENOFOVIR DISOPROXIL FUMARATE
     Indication: HIV INFECTION
     Dosage: 1 DOSAGE FORM, QD
     Route: 065

REACTIONS (10)
  - Renal impairment [Unknown]
  - Toxicity to various agents [Unknown]
  - Diarrhoea [Unknown]
  - Drug interaction [Unknown]
  - Headache [Recovering/Resolving]
  - Diabetes mellitus inadequate control [Unknown]
  - Vomiting [Recovering/Resolving]
  - Visual impairment [Unknown]
  - Nephropathy toxic [Unknown]
  - Nausea [Recovering/Resolving]
